FAERS Safety Report 7172821-6 (Version None)
Quarter: 2010Q4

REPORT INFORMATION
  Report Type: 
  Country: None (occurrence: None)
  Receive Date: 20101219
  Receipt Date: 20100215
  Transmission Date: 20110411
  Serious: No
  Sender: FDA-Public Use
  Company Number: US-AMGEN-KDL392767

PATIENT

DRUGS (13)
  1. ENBREL [Suspect]
     Indication: PRODUCT USED FOR UNKNOWN INDICATION
     Dosage: 50 MG, QWK
     Route: 058
  2. DULOXETIME HYDROCHLORIDE [Concomitant]
     Dosage: 20 MG, UNK
  3. CENTRUM [Concomitant]
     Dosage: UNK UNK, UNK
  4. NABUMETONE [Concomitant]
     Dosage: 500 MG, UNK
  5. PIROXICAM [Concomitant]
     Dosage: 20 MG, UNK
  6. CLONAZEPAM [Concomitant]
     Dosage: .5 MG, UNK
  7. FOLIC ACID [Concomitant]
     Dosage: 1 MG, UNK
  8. AMITRIPTYLINE [Concomitant]
     Dosage: 10 MG, UNK
  9. ACETAMINOPHEN AND HYDROCODONE BITARTRATE [Concomitant]
     Dosage: UNK UNK, UNK
  10. FISH OIL [Concomitant]
     Dosage: UNK UNK, UNK
  11. ERGOCALCIFEROL [Concomitant]
     Dosage: 1000 IU/KG, UNK
  12. CALCIUM WITH VITAMIN D [Concomitant]
     Dosage: UNK UNK, UNK
  13. METHOTREXATE [Concomitant]
     Dosage: 25 MG, UNK

REACTIONS (2)
  - INJECTION SITE ERYTHEMA [None]
  - INJECTION SITE PRURITUS [None]
